FAERS Safety Report 6610604-3 (Version None)
Quarter: 2010Q1

REPORT INFORMATION
  Report Type: 
  Country: None (occurrence: None)
  Receive Date: 20100302
  Receipt Date: 20100218
  Transmission Date: 20100710
  Serious: Yes (Other)
  Sender: FDA-Public Use
  Company Number: US-PFIZER INC-2010022681

PATIENT
  Sex: Female

DRUGS (12)
  1. DETROL LA [Suspect]
     Indication: HYPERTONIC BLADDER
     Dosage: 4 MG, 1X/DAY
  2. LYRICA [Suspect]
     Indication: FIBROMYALGIA
     Dosage: FREQUENCY: 2X/DAY,
  3. SPIRIVA [Suspect]
     Indication: CHRONIC OBSTRUCTIVE PULMONARY DISEASE
     Dosage: 18 UG, UNK
  4. LISINOPRIL [Concomitant]
     Dosage: FREQUENCY: 2X/DAY,
  5. PROVIGIL [Concomitant]
     Indication: FATIGUE
     Dosage: UNK
  6. CYMBALTA [Concomitant]
     Dosage: 60 MG, UNK
  7. PLAVIX [Concomitant]
     Dosage: 75 MG, UNK
  8. AMBIEN [Concomitant]
     Dosage: 12.5 MG, UNK
  9. FLOVENT [Concomitant]
     Dosage: UNK
  10. IBANDRONATE SODIUM [Concomitant]
     Dosage: UNK
  11. SOMA [Concomitant]
     Dosage: UNK
  12. OXYMORPHONE [Concomitant]
     Dosage: FREQUENCY: AS NEEDED,

REACTIONS (4)
  - DRY MOUTH [None]
  - STOMATITIS [None]
  - TOOTH EXTRACTION [None]
  - WEIGHT INCREASED [None]
